FAERS Safety Report 25308750 (Version 1)
Quarter: 2025Q2

REPORT INFORMATION
  Report Type: Spontaneous
  Country: US (occurrence: US)
  Receive Date: 20250513
  Receipt Date: 20250513
  Transmission Date: 20250717
  Serious: No
  Sender: SANOFI AVENTIS
  Company Number: US-SA-2025SA135334

PATIENT
  Sex: Male

DRUGS (18)
  1. DUPIXENT [Suspect]
     Active Substance: DUPILUMAB
     Indication: Dermatitis atopic
     Route: 065
  2. ASPIRIN [Concomitant]
     Active Substance: ASPIRIN
  3. BETAMETHASONE [Concomitant]
     Active Substance: BETAMETHASONE
  4. CARVEDILOL [Concomitant]
     Active Substance: CARVEDILOL
  5. CETIRIZINE HCL [Concomitant]
     Active Substance: CETIRIZINE HYDROCHLORIDE
  6. CLOBETASOL PROPIONATE [Concomitant]
     Active Substance: CLOBETASOL PROPIONATE
  7. CRESTOR [Concomitant]
     Active Substance: ROSUVASTATIN CALCIUM
  8. EPLERENONE [Concomitant]
     Active Substance: EPLERENONE
  9. FLONASE ALLERGY RELIEF [Concomitant]
     Active Substance: FLUTICASONE PROPIONATE
  10. HYDROCORTISONE [Concomitant]
     Active Substance: HYDROCORTISONE
  11. INVOKAMET [Concomitant]
     Active Substance: CANAGLIFLOZIN\METFORMIN HYDROCHLORIDE
  12. LANTUS SOLOSTAR [Concomitant]
     Active Substance: INSULIN GLARGINE
  13. LASIX [Concomitant]
     Active Substance: FUROSEMIDE
  14. LATANOPROST [Concomitant]
     Active Substance: LATANOPROST
  15. MUPIROCIN [Concomitant]
     Active Substance: MUPIROCIN
  16. OMEPRAZOLE [Concomitant]
     Active Substance: OMEPRAZOLE
  17. OZEMPIC [Concomitant]
     Active Substance: SEMAGLUTIDE
  18. TRIAMCINOLONE [Concomitant]
     Active Substance: TRIAMCINOLONE

REACTIONS (1)
  - Rash [Recovered/Resolved]
